FAERS Safety Report 5131008-9 (Version None)
Quarter: 2006Q4

REPORT INFORMATION
  Report Type: 
  Country: None (occurrence: None)
  Receive Date: 20061019
  Receipt Date: 20060920
  Transmission Date: 20070319
  Serious: Yes (Death, Hospitalization, Disabling, Other)
  Sender: FDA-Public Use
  Company Number: US-MERCK-0609USA04378

PATIENT
  Age: 76 Year
  Sex: Male

DRUGS (2)
  1. INVANZ [Suspect]
     Indication: ABDOMINAL ABSCESS
     Route: 042
     Dates: start: 20060908, end: 20060914
  2. TOPROL-XL [Concomitant]
     Route: 048

REACTIONS (5)
  - COLECTOMY [None]
  - DEATH [None]
  - DELIRIUM [None]
  - RESPIRATORY FAILURE [None]
  - SEPSIS [None]
